FAERS Safety Report 5863086-3 (Version None)
Quarter: 2008Q3

REPORT INFORMATION
  Report Type: 
  Country: None (occurrence: None)
  Receive Date: 20080828
  Receipt Date: 20080825
  Transmission Date: 20090109
  Serious: Yes (Hospitalization, Other)
  Sender: FDA-Public Use
  Company Number: US-AVENTIS-200815504US

PATIENT
  Sex: Female

DRUGS (2)
  1. LANTUS [Suspect]
     Dates: start: 20080819, end: 20080819
  2. LANTUS [Suspect]
     Route: 058

REACTIONS (5)
  - ACCIDENTAL OVERDOSE [None]
  - HYPOGLYCAEMIA [None]
  - MENTAL IMPAIRMENT [None]
  - MOBILITY DECREASED [None]
  - RENAL TRANSPLANT [None]
